FAERS Safety Report 13786601 (Version 1)
Quarter: 2017Q3

REPORT INFORMATION
  Report Type: Spontaneous
  Country: US (occurrence: US)
  Receive Date: 20170725
  Receipt Date: 20170725
  Transmission Date: 20171127
  Serious: No
  Sender: FDA-Public Use
  Company Number: US-JNJFOC-20170603689

PATIENT
  Sex: Male
  Weight: 13.61 kg

DRUGS (2)
  1. TYLENOL [Suspect]
     Active Substance: ACETAMINOPHEN
     Indication: PRURITUS
     Route: 065
  2. TYLENOL [Suspect]
     Active Substance: ACETAMINOPHEN
     Indication: INJURY
     Route: 065

REACTIONS (2)
  - Drug administration error [Unknown]
  - Product use in unapproved indication [Unknown]
